FAERS Safety Report 12242288 (Version 1)
Quarter: 2016Q2

REPORT INFORMATION
  Report Type: Spontaneous
  Country: GB (occurrence: GB)
  Receive Date: 20160406
  Receipt Date: 20160406
  Transmission Date: 20160815
  Serious: Yes (Other)
  Sender: FDA-Public Use
  Company Number: GB-JNJFOC-20160403312

PATIENT
  Age: 73 Year
  Sex: Female
  Weight: 95 kg

DRUGS (12)
  1. CETIRIZINE [Concomitant]
     Active Substance: CETIRIZINE HYDROCHLORIDE
     Route: 065
     Dates: start: 20160307
  2. LACTULOSE. [Concomitant]
     Active Substance: LACTULOSE
     Route: 065
     Dates: start: 20131108
  3. AMOXICILLIN. [Concomitant]
     Active Substance: AMOXICILLIN
     Route: 065
     Dates: start: 20151231, end: 20160107
  4. DALTEPARIN [Concomitant]
     Active Substance: DALTEPARIN
     Route: 065
     Dates: start: 20160128, end: 20160202
  5. APIXABAN [Concomitant]
     Active Substance: APIXABAN
     Route: 065
     Dates: start: 20160314
  6. DIPROBASE [Concomitant]
     Active Substance: CHLOROCRESOL
     Route: 065
     Dates: start: 20130128
  7. XARELTO [Suspect]
     Active Substance: RIVAROXABAN
     Indication: PRODUCT USED FOR UNKNOWN INDICATION
     Route: 048
     Dates: start: 20160128
  8. TRAMADOL. [Concomitant]
     Active Substance: TRAMADOL
     Route: 065
     Dates: start: 20131108
  9. EUMOVATE [Concomitant]
     Active Substance: CLOBETASONE BUTYRATE
     Route: 065
     Dates: start: 20160307
  10. LOSARTAN. [Concomitant]
     Active Substance: LOSARTAN
     Route: 065
     Dates: start: 20141126
  11. RANITIDINE. [Concomitant]
     Active Substance: RANITIDINE
     Route: 065
     Dates: start: 20131003
  12. SALBUTAMOL [Concomitant]
     Active Substance: ALBUTEROL
     Dosage: AS NECESSARY
     Route: 055
     Dates: start: 20151224, end: 20160218

REACTIONS (2)
  - Skin irritation [Recovering/Resolving]
  - Rash [Recovering/Resolving]

NARRATIVE: CASE EVENT DATE: 20160318
